FAERS Safety Report 25121017 (Version 4)
Quarter: 2025Q4

REPORT INFORMATION
  Report Type: Spontaneous
  Country: CA (occurrence: CA)
  Receive Date: 20250326
  Receipt Date: 20251230
  Transmission Date: 20260117
  Serious: Yes (Other)
  Sender: SANOFI AVENTIS
  Company Number: CA-SANOFI-02420992

PATIENT
  Sex: Male

DRUGS (3)
  1. INSULIN ASPART [Suspect]
     Active Substance: INSULIN ASPART
     Indication: Diabetes mellitus
     Dosage: PRE-MEAL DOSES OF 2?6 UNITS
     Route: 065
     Dates: start: 2024
  2. INSULIN ASPART [Suspect]
     Active Substance: INSULIN ASPART
     Dosage: UP TO 13 UNITS PER MEAL
     Route: 065
  3. OXYGEN [Concomitant]
     Active Substance: OXYGEN

REACTIONS (7)
  - Deafness [Unknown]
  - Osteomyelitis [Recovering/Resolving]
  - Schizoaffective disorder [Unknown]
  - Diabetes mellitus inadequate control [Unknown]
  - Drug ineffective [Unknown]
  - Blood glucose increased [Unknown]
  - Device breakage [Unknown]

NARRATIVE: CASE EVENT DATE: 20250201
